FAERS Safety Report 12899029 (Version 1)
Quarter: 2016Q4

REPORT INFORMATION
  Report Type: Spontaneous
  Country: US (occurrence: US)
  Receive Date: 20161031
  Receipt Date: 20161031
  Transmission Date: 20170207
  Serious: Yes (Life-Threatening, Hospitalization)
  Sender: FDA-Public Use
  Company Number: None

PATIENT
  Age: 49 Year
  Sex: Female
  Weight: 61.24 kg

DRUGS (7)
  1. VITAMIN C [Concomitant]
     Active Substance: ASCORBIC ACID
  2. MAGNESIUM [Concomitant]
     Active Substance: MAGNESIUM
  3. MIRENA [Suspect]
     Active Substance: LEVONORGESTREL
     Dates: start: 20110530, end: 20160606
  4. VITAMIN D [Concomitant]
     Active Substance: CHOLECALCIFEROL
  5. VITAMIN B12 [Concomitant]
     Active Substance: CYANOCOBALAMIN
  6. CALCIUM [Concomitant]
     Active Substance: CALCIUM
  7. WARFARIN [Concomitant]
     Active Substance: WARFARIN

REACTIONS (5)
  - Carotid artery dissection [None]
  - Blindness unilateral [None]
  - Transient ischaemic attack [None]
  - Blindness transient [None]
  - Cerebrovascular accident [None]

NARRATIVE: CASE EVENT DATE: 20160508
